FAERS Safety Report 16890339 (Version 1)
Quarter: 2019Q4

REPORT INFORMATION
  Report Type: Report from Study
  Country: GB (occurrence: GB)
  Receive Date: 20191007
  Receipt Date: 20191007
  Transmission Date: 20200122
  Serious: Yes (Other)
  Sender: FDA-Public Use
  Company Number: GB-HRAPH01-201900711

PATIENT

DRUGS (2)
  1. ELLAONE [Suspect]
     Active Substance: ULIPRISTAL ACETATE
     Indication: EXPOSURE DURING PREGNANCY
     Route: 064
     Dates: start: 20190729, end: 20190729
  2. AMOXICILLIN. [Concomitant]
     Active Substance: AMOXICILLIN
     Indication: EXPOSURE DURING PREGNANCY
     Dosage: 07 DAYS COURSE
     Route: 064
     Dates: start: 201907, end: 2019

REACTIONS (2)
  - Foetal growth restriction [Unknown]
  - Maternal exposure during pregnancy [Recovered/Resolved]

NARRATIVE: CASE EVENT DATE: 20190729
